FAERS Safety Report 13325345 (Version 2)
Quarter: 2017Q1

REPORT INFORMATION
  Report Type: Spontaneous
  Country: US (occurrence: US)
  Receive Date: 20170310
  Receipt Date: 20170320
  Transmission Date: 20170428
  Serious: Yes (Other)
  Sender: FDA-Public Use
  Company Number: US-PFIZER INC-2017095285

PATIENT
  Age: 86 Year
  Sex: Female

DRUGS (1)
  1. LATANOPROST. [Suspect]
     Active Substance: LATANOPROST
     Dosage: UNK
     Route: 047

REACTIONS (8)
  - Intraocular pressure increased [Unknown]
  - Arthralgia [Unknown]
  - Drug dose omission [Unknown]
  - Ocular hyperaemia [Unknown]
  - Macular degeneration [Unknown]
  - Influenza [Unknown]
  - Chest pain [Unknown]
  - Eye pain [Unknown]
